FAERS Safety Report 25966086 (Version 1)
Quarter: 2025Q4

REPORT INFORMATION
  Report Type: Report from Study
  Country: US (occurrence: US)
  Receive Date: 20251028
  Receipt Date: 20251028
  Transmission Date: 20260118
  Serious: Yes (Hospitalization)
  Sender: JOHNSON AND JOHNSON
  Company Number: US-JNJFOC-20251027064

PATIENT

DRUGS (1)
  1. DARZALEX FASPRO [Suspect]
     Active Substance: DARATUMUMAB\HYALURONIDASE-FIHJ
     Indication: Product used for unknown indication

REACTIONS (7)
  - Malaise [Unknown]
  - Balance disorder [Unknown]
  - Headache [Unknown]
  - Vomiting [Unknown]
  - Pruritus [Unknown]
  - Stomatitis [Unknown]
  - Rash [Unknown]
